FAERS Safety Report 15825789 (Version 1)
Quarter: 2019Q1

REPORT INFORMATION
  Report Type: Spontaneous
  Country: JP (occurrence: ZA)
  Receive Date: 20190115
  Receipt Date: 20190115
  Transmission Date: 20190417
  Serious: Yes (Other)
  Sender: FDA-Public Use
  Company Number: ZA-JACOBUS PHARMACEUTICAL COMPANY, INC.-2061196

PATIENT
  Age: 30 Year
  Sex: Male

DRUGS (6)
  1. AUGMENTIN [Suspect]
     Active Substance: AMOXICILLIN\CLAVULANATE POTASSIUM
  2. PASER [Suspect]
     Active Substance: AMINOSALICYLIC ACID
     Route: 048
     Dates: start: 20180707
  3. LINEZOLID. [Suspect]
     Active Substance: LINEZOLID
  4. DELAMANID TABLETRS [Suspect]
     Active Substance: DELAMANID
  5. ETRAPENEM [Suspect]
     Active Substance: ERTAPENEM
  6. PYRAZINAMID [Suspect]
     Active Substance: PYRAZINAMIDE

REACTIONS (1)
  - Vision blurred [Not Recovered/Not Resolved]

NARRATIVE: CASE EVENT DATE: 20181121
